FAERS Safety Report 5902876-5 (Version None)
Quarter: 2008Q3

REPORT INFORMATION
  Report Type: 
  Country: None (occurrence: None)
  Receive Date: 20080930
  Receipt Date: 20080919
  Transmission Date: 20090109
  Serious: Yes (Death, Hospitalization)
  Sender: FDA-Public Use
  Company Number: GBWYE357304APR07

PATIENT
  Age: 38 Year
  Sex: Male

DRUGS (3)
  1. IBUPROFEN [Suspect]
     Dosage: OVERDOSE (DOSE UNSPECIFIED)
  2. ASPIRIN [Suspect]
     Dosage: OVERDOSE (DOSE UNSPECIFIED)
  3. ACETAMINOPHEN [Suspect]
     Dosage: OVERDOSE OF 10G
     Route: 048

REACTIONS (4)
  - COAGULATION TIME PROLONGED [None]
  - HEPATOTOXICITY [None]
  - OVERDOSE [None]
  - SEPSIS [None]
